FAERS Safety Report 10688191 (Version 1)
Quarter: 2015Q1

REPORT INFORMATION
  Report Type: Spontaneous
  Country: TW (occurrence: TW)
  Receive Date: 20150102
  Receipt Date: 20150102
  Transmission Date: 20150720
  Serious: Yes (Other)
  Sender: FDA-Public Use
  Company Number: TW-AMGEN-TWNSP2014102035

PATIENT

DRUGS (1)
  1. G-LASTA [Suspect]
     Active Substance: PEGFILGRASTIM
     Indication: LYMPHOMA
     Dosage: 6 MG, UNK
     Route: 058
     Dates: start: 201411, end: 201412

REACTIONS (2)
  - Pyrexia [Recovered/Resolved]
  - Interstitial lung disease [Unknown]

NARRATIVE: CASE EVENT DATE: 201412
